FAERS Safety Report 9970050 (Version 1)
Quarter: 2014Q1

REPORT INFORMATION
  Report Type: Spontaneous
  Country: US (occurrence: US)
  Receive Date: 20140306
  Receipt Date: 20140306
  Transmission Date: 20141002
  Serious: Yes (Other)
  Sender: FDA-Public Use
  Company Number: US-NAPPMUNDI-USA-2014-0111652

PATIENT
  Sex: Female

DRUGS (1)
  1. OXYCONTIN (NDA 22-272) [Suspect]
     Indication: PAIN
     Dosage: 80 MG, TID
     Route: 048

REACTIONS (5)
  - Tooth loss [Not Recovered/Not Resolved]
  - Dental caries [Unknown]
  - Regurgitation [Unknown]
  - Constipation [Unknown]
  - Medication residue present [Unknown]
